FAERS Safety Report 13647447 (Version 1)
Quarter: 2017Q2

REPORT INFORMATION
  Report Type: Report from Study
  Country: US (occurrence: US)
  Receive Date: 20170613
  Receipt Date: 20170613
  Transmission Date: 20170830
  Serious: Yes (Hospitalization, Other)
  Sender: FDA-Public Use
  Company Number: US-APOPHARMA USA, INC.-2017AP012617

PATIENT
  Sex: Female
  Weight: 25 kg

DRUGS (5)
  1. FOLIC ACID. [Concomitant]
     Active Substance: FOLIC ACID
     Indication: PRODUCT USED FOR UNKNOWN INDICATION
     Dosage: UNK UNK, QD
     Route: 065
  2. FERRIPROX [Suspect]
     Active Substance: DEFERIPRONE
     Indication: HAEMOCHROMATOSIS
  3. DESFERAL [Concomitant]
     Active Substance: DEFEROXAMINE MESYLATE
     Indication: PRODUCT USED FOR UNKNOWN INDICATION
     Dosage: UNK, Q.H.S.
     Route: 065
  4. FERRIPROX [Suspect]
     Active Substance: DEFERIPRONE
     Indication: THALASSAEMIA
     Dosage: 30 MG/KG, TID
     Route: 048
     Dates: start: 20161228
  5. ENSURE COMPLETE [Concomitant]
     Indication: PRODUCT USED FOR UNKNOWN INDICATION
     Route: 065

REACTIONS (2)
  - Agranulocytosis [Recovered/Resolved]
  - Pyrexia [Recovered/Resolved]
